FAERS Safety Report 10953147 (Version 4)
Quarter: 2015Q2

REPORT INFORMATION
  Report Type: Spontaneous
  Country: US (occurrence: US)
  Receive Date: 20150325
  Receipt Date: 20150505
  Transmission Date: 20150821
  Serious: No
  Sender: FDA-Public Use
  Company Number: US-ELI_LILLY_AND_COMPANY-US201304007280

PATIENT
  Age: 74 Year
  Sex: Female
  Weight: 59.41 kg

DRUGS (4)
  1. TYVASO [Suspect]
     Active Substance: TREPROSTINIL
     Indication: PULMONARY HYPERTENSION
     Dosage: 18 UG, QID
     Route: 055
     Dates: start: 20131030
  2. TYVASO [Suspect]
     Active Substance: TREPROSTINIL
     Dosage: 54 UG, UNK
     Route: 065
  3. REMODULIN [Suspect]
     Active Substance: TREPROSTINIL
     Indication: PULMONARY HYPERTENSION
     Dosage: UNK UNK, OTHER
     Route: 058
     Dates: start: 20150306
  4. ADCIRCA [Suspect]
     Active Substance: TADALAFIL
     Indication: PULMONARY HYPERTENSION
     Dosage: 40 MG, QD
     Route: 048

REACTIONS (10)
  - Urinary incontinence [Unknown]
  - Productive cough [Not Recovered/Not Resolved]
  - Diarrhoea [Unknown]
  - Musculoskeletal pain [Unknown]
  - Epistaxis [Unknown]
  - Anal pruritus [Unknown]
  - Chills [Unknown]
  - Faecal incontinence [Unknown]
  - Feeling cold [Unknown]
  - Rectal discharge [Unknown]

NARRATIVE: CASE EVENT DATE: 201404
